FAERS Safety Report 9736639 (Version 3)
Quarter: 2015Q2

REPORT INFORMATION
  Report Type: Spontaneous
  Country: US (occurrence: US)
  Receive Date: 20131206
  Receipt Date: 20150626
  Transmission Date: 20150821
  Serious: Yes (Hospitalization, Disabling, Other)
  Sender: FDA-Public Use
  Company Number: US-009507513-1312USA001410

PATIENT
  Sex: Female
  Weight: 72.11 kg

DRUGS (5)
  1. FOSAMAX [Suspect]
     Active Substance: ALENDRONATE SODIUM
     Indication: OSTEOPOROSIS
     Dosage: 70 MG, QW
     Route: 048
     Dates: start: 2001, end: 200806
  2. ALENDRONATE SODIUM. [Suspect]
     Active Substance: ALENDRONATE SODIUM
     Indication: OSTEOPOROSIS
     Dosage: 70 MG, UNK
     Route: 048
     Dates: start: 20080620, end: 2012
  3. CALCIUM (UNSPECIFIED) [Concomitant]
     Active Substance: CALCIUM
     Dosage: UNK
     Dates: start: 1970
  4. FOSAMAX PLUS D [Suspect]
     Active Substance: ALENDRONATE SODIUM\CHOLECALCIFEROL
     Indication: OSTEOPOROSIS
     Dosage: UNK
     Route: 048
  5. VITAMINS (UNSPECIFIED) [Concomitant]
     Active Substance: VITAMINS
     Dosage: UNK
     Dates: start: 1970

REACTIONS (19)
  - Chronic kidney disease [Not Recovered/Not Resolved]
  - Adverse event [Recovering/Resolving]
  - Intramedullary rod insertion [Unknown]
  - Sciatica [Unknown]
  - Device dislocation [Unknown]
  - Femur fracture [Not Recovered/Not Resolved]
  - Arthroscopy [Unknown]
  - Femur fracture [Not Recovered/Not Resolved]
  - Essential hypertension [Unknown]
  - Knee arthroplasty [Unknown]
  - Diverticulum intestinal [Unknown]
  - Gastritis [Unknown]
  - Gastric ulcer [Unknown]
  - Low turnover osteopathy [Not Recovered/Not Resolved]
  - Palpitations [Unknown]
  - Blood calcium increased [Unknown]
  - Fracture delayed union [Unknown]
  - Dyspnoea [Unknown]
  - Anaemia postoperative [Unknown]

NARRATIVE: CASE EVENT DATE: 20051002
